FAERS Safety Report 9809093 (Version 2)
Quarter: 2014Q1

REPORT INFORMATION
  Report Type: Spontaneous
  Country: TR (occurrence: TR)
  Receive Date: 20140110
  Receipt Date: 20140130
  Transmission Date: 20141002
  Serious: Yes (Other)
  Sender: FDA-Public Use
  Company Number: PHHY2014TR002289

PATIENT
  Age: 33 Year
  Sex: Female

DRUGS (9)
  1. METHOTREXATE [Suspect]
     Dosage: 75 MG ACCORDING TO 50 MG/M2 REGIMEN
     Route: 030
  2. METHYLPREDNISOLONE [Suspect]
     Dosage: 40 MG, UNK
     Route: 042
  3. FOLINIC ACID [Suspect]
     Dosage: 7.5 MG, UNK
     Route: 030
  4. FILGRASTIM [Suspect]
     Dosage: 30 ML, BID
  5. DIPHENOXYLATE HYDROCHLORIDE [Suspect]
     Route: 048
  6. CALCIUM FOLINATE [Suspect]
     Dosage: 15 MG, QID
  7. MEROPENEM [Suspect]
     Dosage: 500 MG, TID
     Route: 042
  8. TEICOPLANIN [Suspect]
     Dosage: 400 MG, ONCE/SINGLE
  9. NYSTATIN [Suspect]
     Dosage: 1 DF, QID

REACTIONS (11)
  - Bone marrow failure [Recovered/Resolved]
  - Agranulocytosis [Recovered/Resolved]
  - Febrile neutropenia [Recovered/Resolved]
  - Folate deficiency [Recovered/Resolved]
  - Thrombocytopenia [Recovered/Resolved]
  - Pyrexia [Recovered/Resolved]
  - Alopecia [Recovered/Resolved]
  - Dermatitis [Recovered/Resolved]
  - Diarrhoea [Recovered/Resolved]
  - Mouth ulceration [Recovered/Resolved]
  - Maternal exposure during pregnancy [Unknown]
